FAERS Safety Report 6388989-5 (Version None)
Quarter: 2009Q4

REPORT INFORMATION
  Report Type: 
  Country: None (occurrence: None)
  Receive Date: 20091001
  Receipt Date: 20090922
  Transmission Date: 20100525
  Serious: Yes (Other)
  Sender: FDA-Public Use
  Company Number: ADR27562009

PATIENT
  Age: 48 Year
  Sex: Male

DRUGS (2)
  1. RAMIPRIL [Suspect]
     Indication: HYPERTENSION
     Dosage: 1DF, ORAL
     Route: 048
     Dates: start: 20070221, end: 20070305
  2. OTOMIZE [Concomitant]

REACTIONS (4)
  - CHEST PAIN [None]
  - COUGH [None]
  - DIZZINESS [None]
  - NAUSEA [None]
